FAERS Safety Report 8202323-7 (Version None)
Quarter: 2012Q1

REPORT INFORMATION
  Report Type: 
  Country: None (occurrence: None)
  Receive Date: 20120312
  Receipt Date: 20120308
  Transmission Date: 20120608
  Serious: Yes (Life-Threatening, Other)
  Sender: FDA-Public Use
  Company Number: PHHY2012CA018415

PATIENT
  Sex: Female

DRUGS (2)
  1. DETROL [Concomitant]
     Dosage: 2 MG, QHS
     Dates: start: 20120126
  2. GILENYA [Suspect]
     Indication: RELAPSING-REMITTING MULTIPLE SCLEROSIS
     Dosage: 0.5 MG, QD
     Route: 048
     Dates: start: 20110801

REACTIONS (1)
  - SUICIDAL IDEATION [None]
